FAERS Safety Report 10928310 (Version 1)
Quarter: 2015Q1

REPORT INFORMATION
  Report Type: Spontaneous
  Country: US (occurrence: None)
  Receive Date: 20150317
  Receipt Date: 20150317
  Transmission Date: 20150721
  Serious: No
  Sender: FDA-Public Use
  Company Number: None

PATIENT
  Age: 30 Year
  Sex: Female
  Weight: 63.5 kg

DRUGS (6)
  1. BENADRYL [Concomitant]
     Active Substance: DIPHENHYDRAMINE HYDROCHLORIDE
  2. CALMING BALM CONTROL CORRECTIVE [Suspect]
     Active Substance: HYDROCORTISONE ACETATE
     Indication: THERAPEUTIC SKIN CARE TOPICAL
  3. TRIAMCINOLONE CREAM [Concomitant]
  4. ZYRTEC [Concomitant]
     Active Substance: CETIRIZINE HYDROCHLORIDE
  5. FLUCONASE [Concomitant]
  6. SENSITIVE SKIN CLEANSING MILK CONTROL CORRECTIVE [Suspect]
     Active Substance: COSMETICS
     Indication: THERAPEUTIC SKIN CARE TOPICAL

REACTIONS (1)
  - Application site eczema [None]

NARRATIVE: CASE EVENT DATE: 20131025
